FAERS Safety Report 8505830-2 (Version None)
Quarter: 2012Q3

REPORT INFORMATION
  Report Type: 
  Country: None (occurrence: None)
  Receive Date: 20120706
  Receipt Date: 20120706
  Transmission Date: 20120928
  Serious: Yes (Hospitalization)
  Sender: FDA-Public Use
  Company Number: None

PATIENT
  Age: 61 Year
  Sex: Female
  Weight: 61.417 kg

DRUGS (13)
  1. ACYCLOVIR [Concomitant]
  2. DEXAMETHASONE [Concomitant]
  3. COMPAZINE [Concomitant]
  4. ONDANSETRON HYDROCHLORIDE [Concomitant]
  5. PRILOSEC [Concomitant]
  6. VELCADE [Concomitant]
  7. LOVENOX [Concomitant]
  8. ATIVAN [Concomitant]
  9. OXYCODONE HCL [Concomitant]
  10. POLYETHYLENE GLYCOL [Concomitant]
  11. VICODIN [Concomitant]
  12. REVLIMID [Suspect]
     Indication: MULTIPLE MYELOMA
     Dosage: DAYS 1-14
     Dates: start: 20120702, end: 20120704
  13. ASPIRIN [Concomitant]

REACTIONS (3)
  - NEUTROPENIA [None]
  - CHILLS [None]
  - PYREXIA [None]
